FAERS Safety Report 7316193-2 (Version None)
Quarter: 2011Q1

REPORT INFORMATION
  Report Type: 
  Country: None (occurrence: None)
  Receive Date: 20110225
  Receipt Date: 20110217
  Transmission Date: 20110831
  Serious: Yes (Hospitalization)
  Sender: FDA-Public Use
  Company Number: JP-AMGEN-JPNCT2010010220

PATIENT
  Age: 76 Year
  Sex: Male
  Weight: 61 kg

DRUGS (22)
  1. DIOVAN [Concomitant]
     Dosage: UNK
     Route: 048
  2. DETANTOL [Concomitant]
     Dosage: UNK
     Route: 048
  3. PANITUMUMAB [Suspect]
     Indication: COLORECTAL CANCER
     Dosage: 6 MG/KG, Q2WK
     Route: 041
     Dates: start: 20101012, end: 20101025
  4. FLUOROURACIL [Concomitant]
     Indication: COLORECTAL CANCER
     Route: 041
     Dates: start: 20101012
  5. KYTRIL [Concomitant]
     Dosage: UNK
     Route: 042
  6. MYONAL [Concomitant]
     Dosage: UNK
     Route: 048
  7. PROCYLIN [Concomitant]
     Indication: ARTERIOSCLEROSIS OBLITERANS
     Dosage: UNK
     Route: 048
  8. IRINOTECAN HCL [Concomitant]
     Indication: COLORECTAL CANCER
     Route: 041
     Dates: start: 20101012
  9. HYPEN [Concomitant]
     Dosage: UNK
     Route: 048
  10. ITOROL [Concomitant]
     Dosage: UNK
     Route: 048
  11. AZOPT [Concomitant]
     Dosage: UNK
     Route: 047
  12. PRIMPERAN TAB [Concomitant]
     Dosage: UNK
     Route: 042
  13. EMEND [Concomitant]
     Dosage: UNK
     Route: 048
  14. NAUZELIN [Concomitant]
     Dosage: UNK
     Route: 048
  15. MEVALOTIN [Concomitant]
     Indication: HYPERLIPIDAEMIA
     Dosage: UNK
     Route: 048
  16. CORTICOSTEROIDS [Concomitant]
     Indication: PROPHYLAXIS
     Route: 065
  17. CALCIUM LEVOFOLINATE [Concomitant]
     Indication: COLORECTAL CANCER
     Route: 041
     Dates: start: 20101012
  18. MAINTATE [Concomitant]
     Dosage: UNK
     Route: 048
  19. YAKUBAN [Concomitant]
     Dosage: UNK
     Route: 062
  20. PARIET [Concomitant]
     Dosage: UNK
     Route: 048
  21. AMLODIPINE [Concomitant]
     Dosage: UNK
     Route: 048
  22. XALATAN [Concomitant]
     Dosage: UNK
     Route: 047

REACTIONS (2)
  - RASH [None]
  - CATARACT [None]
